FAERS Safety Report 9931579 (Version 2)
Quarter: 2014Q3

REPORT INFORMATION
  Report Type: Spontaneous
  Country: FR (occurrence: None)
  Receive Date: 20140224
  Receipt Date: 20140828
  Transmission Date: 20150326
  Serious: Yes (Hospitalization)
  Sender: FDA-Public Use
  Company Number: AXC-2014-000125

PATIENT
  Age: 42 Year
  Sex: Male

DRUGS (2)
  1. PYLERA [Suspect]
     Active Substance: BISMUTH SUBCITRATE POTASSIUM\METRONIDAZOLE\TETRACYCLINE HYDROCHLORIDE
     Indication: HELICOBACTER INFECTION
     Dosage: UNK
     Route: 048
     Dates: start: 20131029, end: 20131107
  2. LANSOPRAZOL [Concomitant]
     Active Substance: LANSOPRAZOLE
     Indication: HELICOBACTER INFECTION

REACTIONS (7)
  - Tachycardia [None]
  - Gastrooesophageal reflux disease [None]
  - Erythema [None]
  - Gastritis [None]
  - Paraesthesia [None]
  - Gastrooesophageal sphincter insufficiency [None]
  - Skin plaque [None]

NARRATIVE: CASE EVENT DATE: 20131106
